FAERS Safety Report 15555393 (Version 1)
Quarter: 2018Q4

REPORT INFORMATION
  Report Type: Report from Study
  Country: FR (occurrence: FR)
  Receive Date: 20181026
  Receipt Date: 20181026
  Transmission Date: 20190205
  Serious: Yes (Hospitalization, Other)
  Sender: FDA-Public Use
  Company Number: PHHY2017FR028073

PATIENT
  Age: 64 Year
  Sex: Male
  Weight: 63 kg

DRUGS (10)
  1. CORTANCYL [Concomitant]
     Active Substance: PREDNISONE
     Indication: IMMUNOSUPPRESSANT DRUG THERAPY
     Dosage: 5 MG, QD
     Route: 065
     Dates: start: 20140903, end: 20160517
  2. MYFORTIC [Suspect]
     Active Substance: MYCOPHENOLATE SODIUM
     Indication: IMMUNOSUPPRESSANT DRUG THERAPY
     Dosage: 360 MG, QD
     Route: 065
     Dates: start: 20141119, end: 20150113
  3. CERTICAN [Suspect]
     Active Substance: EVEROLIMUS
     Indication: LIVER TRANSPLANT
     Dosage: 5 MG, QD
     Route: 048
     Dates: start: 20140903, end: 20151013
  4. CERTICAN [Suspect]
     Active Substance: EVEROLIMUS
     Dosage: 3.5 MG, QD
     Route: 048
     Dates: start: 20160518, end: 20161026
  5. CERTICAN [Suspect]
     Active Substance: EVEROLIMUS
     Dosage: 4 MG, QD
     Route: 048
     Dates: start: 20161027, end: 20170125
  6. CERTICAN [Suspect]
     Active Substance: EVEROLIMUS
     Indication: IMMUNOSUPPRESSANT DRUG THERAPY
     Dosage: 6 MG, QD
     Route: 048
     Dates: start: 20151014, end: 20160517
  7. CERTICAN [Suspect]
     Active Substance: EVEROLIMUS
     Dosage: 3.5 MG, QD
     Route: 048
     Dates: start: 20170629
  8. MYFORTIC [Suspect]
     Active Substance: MYCOPHENOLATE SODIUM
     Indication: LIVER TRANSPLANT
     Dosage: 720 MG, QD
     Route: 065
     Dates: start: 20140903, end: 20141118
  9. MYFORTIC [Suspect]
     Active Substance: MYCOPHENOLATE SODIUM
     Dosage: 180 MG, QD
     Route: 065
     Dates: start: 20150114, end: 20150331
  10. CERTICAN [Suspect]
     Active Substance: EVEROLIMUS
     Dosage: 5 MG, QD
     Route: 048
     Dates: start: 20170126, end: 20170628

REACTIONS (4)
  - Klebsiella sepsis [Recovered/Resolved]
  - Cough [Recovering/Resolving]
  - Prerenal failure [Recovered/Resolved]
  - Biliary sepsis [Recovered/Resolved]

NARRATIVE: CASE EVENT DATE: 20161224
